FAERS Safety Report 25395705 (Version 2)
Quarter: 2025Q2

REPORT INFORMATION
  Report Type: Spontaneous
  Country: US (occurrence: US)
  Receive Date: 20250604
  Receipt Date: 20250608
  Transmission Date: 20250717
  Serious: Yes (Hospitalization)
  Sender: ABBVIE
  Company Number: US-ABBVIE-6310723

PATIENT
  Age: 79 Year
  Sex: Female
  Weight: 43 kg

DRUGS (1)
  1. HUMIRA [Suspect]
     Active Substance: ADALIMUMAB
     Indication: Rheumatoid arthritis
     Dosage: FORM STRENGTH: 40 MG
     Route: 058
     Dates: start: 202401

REACTIONS (6)
  - Blood pressure abnormal [Recovered/Resolved]
  - Dry mouth [Recovered/Resolved with Sequelae]
  - Dehydration [Recovered/Resolved]
  - Sialoadenitis [Recovered/Resolved]
  - Arthritis [Recovering/Resolving]
  - Arthralgia [Recovering/Resolving]

NARRATIVE: CASE EVENT DATE: 20250526
